FAERS Safety Report 21174772 (Version 1)
Quarter: 2022Q3

REPORT INFORMATION
  Report Type: Report from Study
  Country: US (occurrence: US)
  Receive Date: 20220805
  Receipt Date: 20220805
  Transmission Date: 20221026
  Serious: Yes (Hospitalization)
  Sender: FDA-Public Use
  Company Number: US-BEH-2022148010

PATIENT
  Age: 49 Year
  Sex: Female
  Weight: 83.447 kg

DRUGS (1)
  1. ZEMAIRA [Suspect]
     Active Substance: .ALPHA.1-PROTEINASE INHIBITOR HUMAN
     Indication: Alpha-1 antitrypsin deficiency
     Route: 065

REACTIONS (6)
  - Atrial fibrillation [Unknown]
  - Dyspnoea [Unknown]
  - Chest pain [Unknown]
  - Tachycardia [Unknown]
  - Dyspnoea [Unknown]
  - Chest pain [Unknown]
